FAERS Safety Report 10128573 (Version 4)
Quarter: 2015Q1

REPORT INFORMATION
  Report Type: Spontaneous
  Country: US (occurrence: US)
  Receive Date: 20140428
  Receipt Date: 20150316
  Transmission Date: 20150720
  Serious: Yes (Hospitalization, Other)
  Sender: FDA-Public Use
  Company Number: US-BAYER-2014-060710

PATIENT
  Age: 37 Year
  Sex: Female
  Weight: 83.9 kg

DRUGS (3)
  1. TOPAMAX [Concomitant]
     Active Substance: TOPIRAMATE
     Route: 048
  2. MIRENA [Suspect]
     Active Substance: LEVONORGESTREL
     Indication: CONTRACEPTION
     Dosage: 20 MCG/24HR, CONT
     Route: 015
     Dates: start: 200904, end: 20100422
  3. DIOVAN [Concomitant]
     Active Substance: VALSARTAN
     Route: 048

REACTIONS (10)
  - Ovarian disorder [None]
  - Infertility female [None]
  - Injury [Not Recovered/Not Resolved]
  - Uterine perforation [Not Recovered/Not Resolved]
  - Pelvic pain [Not Recovered/Not Resolved]
  - Injury associated with device [None]
  - Genital haemorrhage [None]
  - Uterine injury [None]
  - Abdominal pain lower [Not Recovered/Not Resolved]
  - Impaired work ability [None]

NARRATIVE: CASE EVENT DATE: 200904
